FAERS Safety Report 13470556 (Version 2)
Quarter: 2017Q3

REPORT INFORMATION
  Report Type: Spontaneous
  Country: US (occurrence: US)
  Receive Date: 20170424
  Receipt Date: 20170811
  Transmission Date: 20171127
  Serious: No
  Sender: FDA-Public Use
  Company Number: US-BIOGEN-2017BI00390416

PATIENT
  Sex: Female

DRUGS (1)
  1. TYSABRI [Suspect]
     Active Substance: NATALIZUMAB
     Indication: MULTIPLE SCLEROSIS
     Route: 065
     Dates: start: 20100705, end: 20120710

REACTIONS (7)
  - Atrophy [Unknown]
  - Pain [Unknown]
  - Extravasation [Unknown]
  - Scar [Unknown]
  - White blood cell count decreased [Unknown]
  - Injection site injury [Unknown]
  - Bone disorder [Unknown]
